FAERS Safety Report 16989414 (Version 1)
Quarter: 2019Q4

REPORT INFORMATION
  Report Type: Spontaneous
  Country: CA (occurrence: CA)
  Receive Date: 20191104
  Receipt Date: 20191104
  Transmission Date: 20200122
  Serious: Yes (Death)
  Sender: FDA-Public Use
  Company Number: CA-PFIZER INC-2019472613

PATIENT
  Age: 36 Year
  Sex: Female
  Weight: 69 kg

DRUGS (3)
  1. GABAPENTIN. [Suspect]
     Active Substance: GABAPENTIN
     Dosage: 300 MG, 1X/DAY
  2. ZOPICLONE [Suspect]
     Active Substance: ZOPICLONE
     Dosage: UNK
  3. AMITRIPTYLINE [Suspect]
     Active Substance: AMITRIPTYLINE
     Dosage: 50 MG, 1X/DAY

REACTIONS (1)
  - Death [Fatal]
